FAERS Safety Report 16898780 (Version 2)
Quarter: 2019Q4

REPORT INFORMATION
  Report Type: Spontaneous
  Country: US (occurrence: US)
  Receive Date: 20191009
  Receipt Date: 20191209
  Transmission Date: 20200122
  Serious: Yes (Other)
  Sender: FDA-Public Use
  Company Number: US-ELI_LILLY_AND_COMPANY-US201909013541

PATIENT
  Age: 53 Year
  Sex: Male

DRUGS (6)
  1. VIAGRA [Suspect]
     Active Substance: SILDENAFIL CITRATE
     Dosage: 100 MG, WEEKLY (1/W), HALF TO A WHOLE PILL ONCE PER WEEK
     Route: 065
     Dates: start: 20120803, end: 20150519
  2. VIAGRA [Suspect]
     Active Substance: SILDENAFIL CITRATE
     Dosage: 100 MG, WEEKLY (1/W), HALF TO A WHOLE PILL ONCE PER WEEK
     Route: 065
     Dates: start: 20070205, end: 20120629
  3. CIALIS [Suspect]
     Active Substance: TADALAFIL
     Indication: ERECTILE DYSFUNCTION
     Dosage: 2.5 MG, DAILY
     Route: 065
     Dates: start: 2017, end: 2017
  4. LEVITRA [Suspect]
     Active Substance: VARDENAFIL HYDROCHLORIDE
     Indication: ERECTILE DYSFUNCTION
     Dosage: 20 MG, UNKNOWN
     Route: 065
     Dates: start: 20090316, end: 20100330
  5. VIAGRA [Suspect]
     Active Substance: SILDENAFIL CITRATE
     Dosage: 100 MG, WEEKLY (1/W), HALF TO A WHOLE PILL ONCE PER WEEK
     Route: 065
     Dates: start: 2016, end: 201905
  6. VIAGRA [Suspect]
     Active Substance: SILDENAFIL CITRATE
     Indication: ERECTILE DYSFUNCTION
     Dosage: 100 MG, WEEKLY (1/W), HALF TO A WHOLE PILL ONCE PER WEEK
     Route: 065
     Dates: start: 20060210, end: 20061230

REACTIONS (2)
  - Atrial fibrillation [Unknown]
  - Lentigo maligna [Unknown]

NARRATIVE: CASE EVENT DATE: 2014
